FAERS Safety Report 12933077 (Version 2)
Quarter: 2016Q4

REPORT INFORMATION
  Report Type: Spontaneous
  Country: RU (occurrence: RU)
  Receive Date: 20161111
  Receipt Date: 20161130
  Transmission Date: 20170207
  Serious: Yes (Death, Hospitalization)
  Sender: FDA-Public Use
  Company Number: RU-ACTELION-A-CH2016-144886

PATIENT
  Age: 21 Year
  Sex: Male

DRUGS (7)
  1. TRACLEER [Suspect]
     Active Substance: BOSENTAN
     Dosage: 62.5 MG, BID
     Route: 048
     Dates: start: 201607
  2. ENALAPRIL [Concomitant]
     Active Substance: ENALAPRIL
     Indication: CARDIAC FAILURE CHRONIC
     Dosage: UNK
     Dates: start: 2015, end: 201608
  3. TRACLEER [Suspect]
     Active Substance: BOSENTAN
     Indication: PULMONARY ARTERIAL HYPERTENSION
     Dosage: 125 MG, BID
     Route: 048
     Dates: end: 20160908
  4. SPIRONOLACTONE. [Concomitant]
     Active Substance: SPIRONOLACTONE
     Indication: CARDIAC FAILURE CHRONIC
     Dosage: UNK
     Dates: start: 2015, end: 20160908
  5. CORAXAN [Concomitant]
     Active Substance: IVABRADINE HYDROCHLORIDE
     Indication: CARDIAC FAILURE CHRONIC
     Dosage: UNK
     Dates: start: 2015, end: 201508
  6. FUROSEMID [Concomitant]
     Active Substance: FUROSEMIDE
     Indication: CARDIAC FAILURE CHRONIC
     Dosage: UNK
     Dates: start: 2015, end: 20160908
  7. CARDIOMAGNYL [Concomitant]
     Active Substance: ASPIRIN\MAGNESIUM HYDROXIDE
     Indication: CARDIAC FAILURE CHRONIC
     Dosage: UNK
     Dates: start: 2015, end: 201608

REACTIONS (7)
  - Pneumonia [Unknown]
  - Oedema peripheral [Fatal]
  - Sepsis [Fatal]
  - Cardiac failure [Unknown]
  - Oedema [Unknown]
  - Abdominal wall disorder [Fatal]
  - Generalised oedema [Unknown]

NARRATIVE: CASE EVENT DATE: 201607
